FAERS Safety Report 22263897 (Version 1)
Quarter: 2023Q2

REPORT INFORMATION
  Report Type: Report from Study
  Country: US (occurrence: US)
  Receive Date: 20230428
  Receipt Date: 20230428
  Transmission Date: 20230721
  Serious: No
  Sender: FDA-Public Use
  Company Number: US-002147023-NVSC2023US092232

PATIENT
  Sex: Female
  Weight: 58.957 kg

DRUGS (2)
  1. ALBUTEROL SULFATE [Suspect]
     Active Substance: ALBUTEROL SULFATE
     Indication: Psoriasis
     Dosage: 90 UG
  2. CLOBETASOL [Suspect]
     Active Substance: CLOBETASOL
     Indication: Psoriasis
     Dosage: 0.05 %, TIW
     Route: 065

REACTIONS (8)
  - Skin lesion [Unknown]
  - Skin irritation [Unknown]
  - Erythema [Unknown]
  - Skin exfoliation [Unknown]
  - Skin burning sensation [Unknown]
  - Skin hyperpigmentation [Unknown]
  - Lichenification [Unknown]
  - Product use in unapproved indication [Unknown]
